FAERS Safety Report 22353270 (Version 2)
Quarter: 2023Q2

REPORT INFORMATION
  Report Type: Spontaneous
  Country: US (occurrence: US)
  Receive Date: 20230523
  Receipt Date: 20230617
  Transmission Date: 20230721
  Serious: No
  Sender: FDA-Public Use
  Company Number: US-AMGEN-USASP2023087943

PATIENT
  Age: 66 Year
  Sex: Female

DRUGS (3)
  1. TAVNEOS [Suspect]
     Active Substance: AVACOPAN
     Indication: Granulomatosis with polyangiitis
     Dosage: 30 MILLIGRAM, BID (TAKE 3 CAPSULES (30 MG) BY MOUTH TWICE DAILY WITH FOOD}
     Route: 048
     Dates: start: 20230522
  2. TAVNEOS [Suspect]
     Active Substance: AVACOPAN
     Dosage: 30 MILLIGRAM, BID (TAKE 3 CAPSULES (30 MG) BY MOUTH TWICE DAILY WITH FOOD)
     Route: 048
     Dates: start: 20230523
  3. TAVNEOS [Suspect]
     Active Substance: AVACOPAN
     Dosage: UNK (HER DOSE WAS LOWERED)
     Route: 048

REACTIONS (8)
  - Nasopharyngitis [Unknown]
  - Dyspnoea [Unknown]
  - Fatigue [Unknown]
  - Vision blurred [Unknown]
  - Diarrhoea [Unknown]
  - Dizziness [Unknown]
  - Oropharyngeal discomfort [Unknown]
  - Musculoskeletal discomfort [Unknown]

NARRATIVE: CASE EVENT DATE: 20230101
